FAERS Safety Report 23563749 (Version 1)
Quarter: 2024Q1

REPORT INFORMATION
  Report Type: Spontaneous
  Country: ZA (occurrence: ZA)
  Receive Date: 20240226
  Receipt Date: 20240226
  Transmission Date: 20240410
  Serious: Yes (Hospitalization)
  Sender: FDA-Public Use
  Company Number: ZA-LUPIN EUROPE GMBH-2024-01405

PATIENT

DRUGS (6)
  1. SILDENAFIL CITRATE [Suspect]
     Active Substance: SILDENAFIL CITRATE
     Indication: Erectile dysfunction
     Dosage: 100 MG, QD (ONE TABLET ONCE A DAY WHEN NEEDED)
     Route: 048
  2. LISINOPRIL [Suspect]
     Active Substance: LISINOPRIL
     Indication: Hypertension
     Dosage: 20 MG, QD
     Route: 048
  3. SOTALOL [Suspect]
     Active Substance: SOTALOL
     Indication: Hypertension
     Dosage: 80 MG, BID
     Route: 048
  4. WARFARIN [Suspect]
     Active Substance: WARFARIN
     Indication: Anticoagulant therapy
     Dosage: 5 MG (AS PER INR)
     Route: 048
  5. AMLODIPINE BESYLATE [Suspect]
     Active Substance: AMLODIPINE BESYLATE
     Indication: Hypertension
     Dosage: 5 MG, QD
     Route: 048
  6. GEMFIBROZIL [Suspect]
     Active Substance: GEMFIBROZIL
     Indication: Blood cholesterol abnormal
     Dosage: 80 MG, QD
     Route: 048

REACTIONS (1)
  - Cardiac disorder [Unknown]
